FAERS Safety Report 6203538-X (Version None)
Quarter: 2009Q2

REPORT INFORMATION
  Report Type: 
  Country: None (occurrence: None)
  Receive Date: 20090522
  Receipt Date: 20090522
  Transmission Date: 20091009
  Serious: No
  Sender: FDA-Public Use
  Company Number: None

PATIENT
  Age: 32 Year
  Sex: Female

DRUGS (1)
  1. HYZAAR [Suspect]
     Indication: HYPERTENSION
     Dosage: 50/12.5 ONCE DAILY PO
     Route: 048
     Dates: start: 20090502, end: 20090502

REACTIONS (3)
  - MUSCLE SPASMS [None]
  - NECK PAIN [None]
  - PAIN IN JAW [None]
